FAERS Safety Report 24446230 (Version 2)
Quarter: 2025Q1

REPORT INFORMATION
  Report Type: Report from Study
  Country: DE (occurrence: DE)
  Receive Date: 20241016
  Receipt Date: 20250116
  Transmission Date: 20250409
  Serious: Yes (Hospitalization, Other)
  Sender: SANDOZ
  Company Number: DE-SANDOZ-SDZ2024DE021345

PATIENT
  Sex: Female

DRUGS (13)
  1. ETANERCEPT [Suspect]
     Active Substance: ETANERCEPT
     Indication: Product used for unknown indication
     Dosage: 50 MG, QW
     Route: 065
     Dates: end: 20231017
  2. ETANERCEPT [Suspect]
     Active Substance: ETANERCEPT
     Route: 065
     Dates: start: 20220810, end: 202306
  3. ETANERCEPT [Suspect]
     Active Substance: ETANERCEPT
     Route: 065
     Dates: start: 20230822, end: 202310
  4. ETANERCEPT [Suspect]
     Active Substance: ETANERCEPT
     Route: 065
     Dates: start: 201803, end: 201901
  5. ETANERCEPT [Suspect]
     Active Substance: ETANERCEPT
     Route: 065
     Dates: start: 201902, end: 201905
  6. ETANERCEPT [Suspect]
     Active Substance: ETANERCEPT
     Route: 065
     Dates: start: 201906, end: 202005
  7. ETANERCEPT [Suspect]
     Active Substance: ETANERCEPT
     Route: 065
     Dates: start: 202007, end: 202105
  8. ETANERCEPT [Suspect]
     Active Substance: ETANERCEPT
     Route: 065
     Dates: start: 202106, end: 202302
  9. ETANERCEPT [Suspect]
     Active Substance: ETANERCEPT
     Route: 065
     Dates: start: 202203, end: 202206
  10. ETANERCEPT [Suspect]
     Active Substance: ETANERCEPT
     Route: 042
     Dates: end: 20241203
  11. ETANERCEPT [Suspect]
     Active Substance: ETANERCEPT
     Route: 065
     Dates: start: 20231205
  12. ETANERCEPT [Suspect]
     Active Substance: ETANERCEPT
     Route: 065
  13. ORENCIA [Suspect]
     Active Substance: ABATACEPT
     Indication: Product used for unknown indication
     Dosage: 1000 MG, Q4W
     Route: 065
     Dates: start: 20241210

REACTIONS (10)
  - Hypertensive crisis [Recovered/Resolved]
  - Cataract [Unknown]
  - Low density lipoprotein increased [Unknown]
  - Hip arthroplasty [Unknown]
  - Aortic valve disease mixed [Unknown]
  - COVID-19 [Recovered/Resolved]
  - Folate deficiency [Recovered/Resolved]
  - Asthma [Unknown]
  - Periodontitis [Unknown]
  - Left ventricular dysfunction [Unknown]

NARRATIVE: CASE EVENT DATE: 20221015
